FAERS Safety Report 10370412 (Version 1)
Quarter: 2014Q1

REPORT INFORMATION
  Report Type: Spontaneous
  Country: US (occurrence: None)
  Receive Date: 20140306
  Receipt Date: 20140306
  Transmission Date: 20141002
  Serious: Yes (Disabling, Other)
  Sender: FDA-Public Use
  Company Number: 163-21880-13084153

PATIENT
  Age: 78 Year
  Sex: Male

DRUGS (9)
  1. REVLIMID [Suspect]
     Indication: PLASMA CELL MYELOMA
     Dosage: 15 MG, 21 IN 21 D, PO
     Route: 048
     Dates: start: 20101222, end: 20130829
  2. OXYCONTIN (OXYCODONE HYDROCHLORIDE) [Suspect]
     Indication: PRODUCT USED FOR UNKNOWN INDICATION
     Dosage: 30 MG, 3 IN 1 D
  3. VITAMIN B2 [Concomitant]
  4. TRAZODONE HCL [Concomitant]
  5. DURAGESIC [Concomitant]
  6. METFORMIN (METFORMIN) [Concomitant]
  7. ASA (ACETYLSALICYLIC ACID) [Concomitant]
  8. SENEKOT [Concomitant]
  9. FENTANYL (FENTANYL) [Concomitant]

REACTIONS (2)
  - Hallucination [None]
  - Oedema peripheral [None]
